FAERS Safety Report 25252163 (Version 3)
Quarter: 2025Q2

REPORT INFORMATION
  Report Type: Report from Study
  Country: CA (occurrence: CA)
  Receive Date: 20250429
  Receipt Date: 20250429
  Transmission Date: 20250716
  Serious: Yes (Hospitalization, Other)
  Sender: HLS THERAPEUTICS
  Company Number: CA-HLS-202501027

PATIENT
  Age: 35 Year
  Sex: Male
  Weight: 82 kg

DRUGS (5)
  1. CLOZARIL [Suspect]
     Active Substance: CLOZAPINE
     Indication: Product used for unknown indication
     Route: 048
     Dates: start: 20171116
  2. CLOZARIL [Suspect]
     Active Substance: CLOZAPINE
     Indication: Product used for unknown indication
     Route: 065
  3. Aripiprazole LAI [Concomitant]
     Indication: Product used for unknown indication
     Route: 065
  4. FAMOTIDINE [Concomitant]
     Active Substance: FAMOTIDINE
     Indication: Product used for unknown indication
     Route: 065
  5. ONDANSETRON [Concomitant]
     Active Substance: ONDANSETRON
     Indication: Product used for unknown indication
     Route: 065
     Dates: start: 202503

REACTIONS (5)
  - Left ventricular hypertrophy [Unknown]
  - Rash [Unknown]
  - Electrocardiogram repolarisation abnormality [Unknown]
  - Electrocardiogram ST segment elevation [Unknown]
  - Treatment noncompliance [Unknown]

NARRATIVE: CASE EVENT DATE: 20221001
